FAERS Safety Report 12072865 (Version 5)
Quarter: 2019Q2

REPORT INFORMATION
  Report Type: Spontaneous
  Country: US (occurrence: US)
  Receive Date: 20160212
  Receipt Date: 20190513
  Transmission Date: 20190711
  Serious: No
  Sender: FDA-Public Use
  Company Number: US-PFIZER INC-2016077425

PATIENT
  Age: 71 Year
  Sex: Female
  Weight: 99.79 kg

DRUGS (3)
  1. PRISTIQ EXTENDED-RELEASE [Suspect]
     Active Substance: DESVENLAFAXINE SUCCINATE
     Indication: BIPOLAR II DISORDER
     Dosage: 100 MG, 1X/DAY
     Route: 048
     Dates: start: 2015
  2. ADVIL [IBUPROFEN] [Concomitant]
     Active Substance: IBUPROFEN
     Indication: FIBROMYALGIA
     Dosage: UNK (ONE TABLET, OCCASIONALLY ONCE EVERY COUPLE OF WEEK)
  3. ASPIRIN (E.C.) [Concomitant]
     Active Substance: ASPIRIN
     Indication: HYPERTENSION
     Dosage: 83 MG, 1X/DAY

REACTIONS (11)
  - Asthenia [Unknown]
  - Disturbance in attention [Unknown]
  - Drug half-life reduced [Recovered/Resolved]
  - Off label use [Unknown]
  - Mood altered [Unknown]
  - Emotional disorder [Unknown]
  - Depression [Unknown]
  - Feeling abnormal [Recovered/Resolved]
  - Product use in unapproved indication [Unknown]
  - Drug withdrawal syndrome [Recovered/Resolved]
  - Loss of personal independence in daily activities [Recovered/Resolved]

NARRATIVE: CASE EVENT DATE: 2015
